FAERS Safety Report 19410649 (Version 1)
Quarter: 2021Q2

REPORT INFORMATION
  Report Type: Spontaneous
  Country: US (occurrence: US)
  Receive Date: 20210614
  Receipt Date: 20210614
  Transmission Date: 20210717
  Serious: No
  Sender: FDA-Public Use
  Company Number: US-SA-2021SA194864

PATIENT
  Age: 36 Year
  Sex: Male

DRUGS (1)
  1. DUPIXENT [Suspect]
     Active Substance: DUPILUMAB
     Indication: ILLNESS
     Route: 058

REACTIONS (5)
  - Pruritus [Unknown]
  - Condition aggravated [Unknown]
  - Product dose omission issue [Unknown]
  - COVID-19 [Unknown]
  - Product use in unapproved indication [Unknown]
